FAERS Safety Report 8090806-2 (Version None)
Quarter: 2012Q1

REPORT INFORMATION
  Report Type: 
  Country: None (occurrence: None)
  Receive Date: 20120125
  Receipt Date: 20120110
  Transmission Date: 20120608
  Serious: Yes (Other)
  Sender: FDA-Public Use
  Company Number: 2012PV000012

PATIENT

DRUGS (10)
  1. CYCLOPHOSPHAMIDE [Concomitant]
  2. CYTARABINE [Concomitant]
  3. ETOPOSIDE [Concomitant]
  4. DEPOCYT [Suspect]
     Indication: LYMPHOMA
     Dosage: 50 MG;INTH
     Route: 037
  5. DEXAMETHASONE [Concomitant]
  6. VINCRISTINE [Concomitant]
  7. DOXORUBICIN HCL [Concomitant]
  8. RITUXIMAB [Concomitant]
  9. IFOSFAMIDE [Concomitant]
  10. METHOTREXATE [Concomitant]

REACTIONS (2)
  - HEADACHE [None]
  - VISION BLURRED [None]
